FAERS Safety Report 6732087-5 (Version None)
Quarter: 2010Q2

REPORT INFORMATION
  Report Type: 
  Country: None (occurrence: None)
  Receive Date: 20100519
  Receipt Date: 20100514
  Transmission Date: 20101027
  Serious: Yes (Death)
  Sender: FDA-Public Use
  Company Number: US-BRISTOL-MYERS SQUIBB COMPANY-15107469

PATIENT
  Age: 63 Year
  Sex: Male
  Weight: 96 kg

DRUGS (4)
  1. ERBITUX [Suspect]
     Indication: NON-SMALL CELL LUNG CANCER
     Dosage: TOTAL NO OF COURSES:30.LOT#08C00212A.START DATE OF FIRST COURSE:01DEC09
     Dates: start: 20091201, end: 20100316
  2. CARBOPLATIN [Suspect]
     Indication: NON-SMALL CELL LUNG CANCER
     Dosage: START DATE OF FIRST COURSE:01DEC09
     Dates: start: 20091208, end: 20100302
  3. TAXOL [Suspect]
     Indication: NON-SMALL CELL LUNG CANCER
     Dosage: START DATE OF FIRST COURSE:01DEC09
     Dates: start: 20091208, end: 20100302
  4. RADIATION THERAPY [Suspect]
     Indication: NON-SMALL CELL LUNG CANCER
     Dosage: DF=GY,NO OF FRACTIONS:30,NO OF ELAPSED:43
     Dates: end: 20100120

REACTIONS (1)
  - PNEUMONITIS [None]
